APPROVED DRUG PRODUCT: BACLOFEN
Active Ingredient: BACLOFEN
Strength: 10MG/5ML
Dosage Form/Route: SOLUTION;ORAL
Application: A214445 | Product #002 | TE Code: AA
Applicant: RUBICON RESEARCH LTD
Approved: Jun 3, 2025 | RLD: No | RS: No | Type: RX